FAERS Safety Report 22235936 (Version 1)
Quarter: 2023Q2

REPORT INFORMATION
  Report Type: Spontaneous
  Country: US (occurrence: None)
  Receive Date: 20230419
  Receipt Date: 20230419
  Transmission Date: 20230721
  Serious: Yes (Hospitalization)
  Sender: FDA-Public Use
  Company Number: None

PATIENT
  Age: 68 Year
  Sex: Female

DRUGS (1)
  1. EVEROLIMUS [Suspect]
     Active Substance: EVEROLIMUS
     Dosage: 10 MG DAILY ORAL
     Route: 048

REACTIONS (8)
  - Drug ineffective [None]
  - Nail disorder [None]
  - Joint swelling [None]
  - Impaired driving ability [None]
  - Seizure [None]
  - Lymphoedema [None]
  - Pleural effusion [None]
  - Fungal infection [None]

NARRATIVE: CASE EVENT DATE: 20230419
